FAERS Safety Report 24285259 (Version 1)
Quarter: 2024Q3

REPORT INFORMATION
  Report Type: Spontaneous
  Country: IN (occurrence: IN)
  Receive Date: 20240905
  Receipt Date: 20240905
  Transmission Date: 20241016
  Serious: Yes (Death)
  Sender: RANBAXY
  Company Number: IN-SUN PHARMACEUTICAL INDUSTRIES LTD-2024R1-465497

PATIENT
  Age: 23 Year
  Sex: Male

DRUGS (3)
  1. PHENYTOIN [Suspect]
     Active Substance: PHENYTOIN
     Indication: Seizure
     Dosage: 300 MILLIGRAM
     Route: 042
  2. LEVETIRACETAM [Concomitant]
     Active Substance: LEVETIRACETAM
     Indication: Seizure
     Dosage: 2000 MILLIGRAM, DAILY
     Route: 065
  3. DEXAMETHASONE [Concomitant]
     Active Substance: DEXAMETHASONE
     Indication: Seizure
     Dosage: 24 MILLIGRAM, DAILY
     Route: 065

REACTIONS (2)
  - Disease recurrence [Fatal]
  - Therapy cessation [Unknown]
